FAERS Safety Report 4986026-8 (Version None)
Quarter: 2006Q2

REPORT INFORMATION
  Report Type: 
  Country: None (occurrence: None)
  Receive Date: 20060424
  Receipt Date: 20060413
  Transmission Date: 20061013
  Serious: Yes (Hospitalization)
  Sender: FDA-Public Use
  Company Number: 163-20785-06040521

PATIENT
  Age: 59 Year
  Sex: Male

DRUGS (5)
  1. THALOMID [Suspect]
     Indication: MULTIPLE MYELOMA
     Dosage: 200 MG, EVERY 29 DAYS, ORAL
     Route: 048
     Dates: start: 20060403
  2. ZOMETA [Suspect]
     Indication: MULTIPLE MYELOMA
     Dosage: 3 MG, QM, INTRAVENOUS
     Route: 042
     Dates: start: 20060403, end: 20060403
  3. PRINIVIL [Concomitant]
  4. PRILOSEC [Concomitant]
  5. GLUCOSAMIDE (GLUCOSAMIDE) [Concomitant]

REACTIONS (7)
  - AZOTAEMIA [None]
  - METABOLIC ACIDOSIS [None]
  - NAUSEA [None]
  - NECROTISING FASCIITIS [None]
  - RESPIRATORY FAILURE [None]
  - SEPTIC SHOCK [None]
  - VOMITING [None]
